FAERS Safety Report 5949662-8 (Version None)
Quarter: 2008Q4

REPORT INFORMATION
  Report Type: 
  Country: None (occurrence: None)
  Receive Date: 20081112
  Receipt Date: 20081104
  Transmission Date: 20090506
  Serious: Yes (Hospitalization)
  Sender: FDA-Public Use
  Company Number: JP-JNJFOC-20080805798

PATIENT
  Age: 64 Year
  Sex: Female

DRUGS (4)
  1. LOPEMIN [Suspect]
     Indication: DIARRHOEA
     Route: 048
  2. RABEPRAZOLE SODIUM [Suspect]
     Indication: DRUG USE FOR UNKNOWN INDICATION
     Route: 048
  3. MYSLEE [Concomitant]
     Route: 048
  4. ANTI-TUMOR DRUG [Concomitant]
     Indication: OVARIAN CANCER

REACTIONS (1)
  - LIVER FUNCTION TEST ABNORMAL [None]
